FAERS Safety Report 10880052 (Version 1)
Quarter: 2015Q1

REPORT INFORMATION
  Report Type: Report from Study
  Country: BR (occurrence: BR)
  Receive Date: 20150302
  Receipt Date: 20150302
  Transmission Date: 20150721
  Serious: Yes (Other)
  Sender: FDA-Public Use
  Company Number: BR-ABBVIE-09P-020-0602930-00

PATIENT
  Age: 55 Year
  Sex: Female
  Weight: 60 kg

DRUGS (44)
  1. LAVIQUI [Concomitant]
     Indication: SWELLING
     Route: 048
  2. CHLOROQUINE [Concomitant]
     Active Substance: CHLOROQUINE\CHLOROQUINE PHOSPHATE
     Indication: OSTEOARTHRITIS
     Route: 048
  3. FURDIDOXINA [Concomitant]
     Indication: MENTAL DISORDER
     Route: 048
  4. HUMIRA [Suspect]
     Active Substance: ADALIMUMAB
     Indication: RHEUMATOID ARTHRITIS
     Route: 058
     Dates: start: 20090227, end: 20090825
  5. LASIX [Concomitant]
     Active Substance: FUROSEMIDE
     Indication: HYPERTENSION
     Route: 048
  6. AMLODIPINE [Concomitant]
     Active Substance: AMLODIPINE BESYLATE
     Indication: HYPERTENSION
     Route: 048
  7. PROMETHAZINE [Concomitant]
     Active Substance: PROMETHAZINE\PROMETHAZINE HYDROCHLORIDE
     Indication: SEDATIVE THERAPY
  8. FLUOXETINE [Concomitant]
     Active Substance: FLUOXETINE\FLUOXETINE HYDROCHLORIDE
     Indication: FEELING OF RELAXATION
     Dosage: 3 TABS IN AM AND 2 TABS IN PM
  9. EPISOL [Concomitant]
     Active Substance: OXYBENZONE\PADIMATE O
     Indication: HYPERTENSION
     Route: 048
  10. FOLIC ACID. [Concomitant]
     Active Substance: FOLIC ACID
     Indication: BONE DISORDER
     Route: 048
  11. AEROLIN [Concomitant]
     Active Substance: ALBUTEROL
     Indication: BRONCHITIS
     Route: 048
  12. VOLTAREN [Concomitant]
     Active Substance: DICLOFENAC SODIUM
     Indication: PAIN
     Dosage: IF PRESENTS PAIN
     Route: 048
     Dates: start: 1989
  13. NIMESULIDE [Concomitant]
     Active Substance: NIMESULIDE
     Indication: CHEST PAIN
     Route: 048
     Dates: start: 2003
  14. OMEPRAZOLE. [Concomitant]
     Active Substance: OMEPRAZOLE
     Indication: GASTRITIS
     Route: 048
     Dates: start: 1974
  15. DIPYRONE [Concomitant]
     Active Substance: DIPYRONE
     Indication: PAIN
     Route: 048
     Dates: start: 20050726
  16. VOLTAREN [Concomitant]
     Active Substance: DICLOFENAC SODIUM
     Indication: PAIN
     Route: 048
     Dates: start: 20050726
  17. DIGOXIN. [Concomitant]
     Active Substance: DIGOXIN
     Indication: CHEST PAIN
     Route: 048
  18. LAVIQUI [Concomitant]
     Indication: DYSURIA
  19. ISORDIL [Concomitant]
     Active Substance: ISOSORBIDE DINITRATE
     Indication: CHEST PAIN
     Dosage: AS NEEDED IN CASE OF PAIN
     Route: 048
  20. FENOTEROL [Concomitant]
     Active Substance: FENOTEROL
     Indication: BRONCHITIS
  21. ARAVA [Concomitant]
     Active Substance: LEFLUNOMIDE
     Indication: RHEUMATOID ARTHRITIS
     Route: 048
     Dates: start: 2014
  22. LOSARTAN [Concomitant]
     Active Substance: LOSARTAN
     Indication: BLOOD PRESSURE ABNORMAL
     Route: 048
     Dates: start: 201410
  23. METHOTREXATE [Concomitant]
     Active Substance: METHOTREXATE
     Indication: OSTEOARTHRITIS
     Route: 048
  24. ALUMINIUM HYDROXIDE [Concomitant]
     Active Substance: ALUMINUM HYDROXIDE
     Indication: GASTRIC DISORDER
     Dosage: 2 SOUP SPOONS DAILY
     Route: 048
     Dates: start: 20090302
  25. RISPERIDONE. [Concomitant]
     Active Substance: RISPERIDONE
     Indication: CARDIAC DISORDER
     Route: 048
     Dates: start: 2014
  26. ESPIROLONA [Concomitant]
     Indication: HYPERTENSION
     Route: 048
  27. LAPTEC [Concomitant]
     Indication: CARDIAC DISORDER
     Route: 048
  28. FLUCONAZOLE. [Concomitant]
     Active Substance: FLUCONAZOLE
     Indication: SKIN FISSURES
  29. ENALAPRIL [Concomitant]
     Active Substance: ENALAPRIL
     Indication: HYPERTENSION
     Route: 048
  30. PREDNISONE. [Concomitant]
     Active Substance: PREDNISONE
     Indication: PAIN
     Route: 048
     Dates: start: 1974
  31. SUSTRATE [Concomitant]
     Active Substance: PROPATYL NITRATE
     Indication: HYPERTENSION
     Route: 048
     Dates: start: 20090203
  32. FLUOXETINE [Concomitant]
     Active Substance: FLUOXETINE\FLUOXETINE HYDROCHLORIDE
     Indication: PROPHYLAXIS
  33. SPIRONOLACTONE. [Concomitant]
     Active Substance: SPIRONOLACTONE
     Indication: BLOOD PRESSURE
     Dates: start: 1984
  34. PROMETHAZINE [Concomitant]
     Active Substance: PROMETHAZINE\PROMETHAZINE HYDROCHLORIDE
     Indication: SLEEP DISORDER THERAPY
     Route: 048
  35. AAS [Concomitant]
     Active Substance: ASPIRIN
     Indication: ANTICOAGULANT THERAPY
     Route: 048
     Dates: start: 2003
  36. HUMIRA [Suspect]
     Active Substance: ADALIMUMAB
     Route: 058
     Dates: start: 20091014
  37. CHLOROQUINE, DICLOFENAC [Concomitant]
     Indication: RHEUMATOID ARTHRITIS
     Route: 048
  38. PREDNISONE. [Concomitant]
     Active Substance: PREDNISONE
     Indication: ASTHMA
  39. ENALAPRIL MALEATE. [Concomitant]
     Active Substance: ENALAPRIL MALEATE
     Indication: HYPERTENSION
     Route: 048
     Dates: start: 1986
  40. KETOCONAZOLE. [Concomitant]
     Active Substance: KETOCONAZOLE
     Indication: RASH
     Route: 061
  41. ISORDIL [Concomitant]
     Active Substance: ISOSORBIDE DINITRATE
     Indication: DYSPNOEA
  42. HYDROXYZINE [Concomitant]
     Active Substance: HYDROXYZINE\HYDROXYZINE HYDROCHLORIDE
     Indication: CARDIAC DISORDER
     Route: 048
  43. INDOMETHACIN. [Concomitant]
     Active Substance: INDOMETHACIN
     Indication: MUSCLE RELAXANT THERAPY
     Route: 048
     Dates: start: 2014
  44. DIAZEPAM. [Concomitant]
     Active Substance: DIAZEPAM
     Indication: MENTAL DISORDER
     Dosage: QUARTER OF TABLET PER NIGHT
     Dates: start: 1972

REACTIONS (28)
  - Fall [Not Recovered/Not Resolved]
  - Muscle atrophy [Not Recovered/Not Resolved]
  - Hypoaesthesia [Not Recovered/Not Resolved]
  - Dyspnoea [Not Recovered/Not Resolved]
  - Joint swelling [Recovered/Resolved]
  - Pain [Not Recovered/Not Resolved]
  - Injection site discolouration [Unknown]
  - Skin lesion [Not Recovered/Not Resolved]
  - Anaemia [Not Recovered/Not Resolved]
  - Injection site abscess [Unknown]
  - Muscle atrophy [Not Recovered/Not Resolved]
  - Formication [Not Recovered/Not Resolved]
  - Injection site pain [Recovered/Resolved]
  - Agitation [Not Recovered/Not Resolved]
  - Bone pain [Not Recovered/Not Resolved]
  - Injection site pain [Unknown]
  - Atrophy [Not Recovered/Not Resolved]
  - Visual impairment [Not Recovered/Not Resolved]
  - Nasal congestion [Not Recovered/Not Resolved]
  - Productive cough [Not Recovered/Not Resolved]
  - Injection site pain [Not Recovered/Not Resolved]
  - Joint injury [Not Recovered/Not Resolved]
  - Muscle atrophy [Not Recovered/Not Resolved]
  - Joint swelling [Not Recovered/Not Resolved]
  - Injection site pain [Unknown]
  - Arthralgia [Recovered/Resolved]
  - Muscular weakness [Not Recovered/Not Resolved]
  - Joint dislocation [Not Recovered/Not Resolved]

NARRATIVE: CASE EVENT DATE: 2009
